FAERS Safety Report 22212764 (Version 1)
Quarter: 2023Q2

REPORT INFORMATION
  Report Type: Spontaneous
  Country: US (occurrence: US)
  Receive Date: 20230414
  Receipt Date: 20230414
  Transmission Date: 20230721
  Serious: Yes (Life-Threatening, Hospitalization)
  Sender: FDA-Public Use
  Company Number: US-MYLANLABS-2023M1039097

PATIENT
  Age: 67 Year
  Sex: Female

DRUGS (2)
  1. WARFARIN [Suspect]
     Active Substance: WARFARIN
     Indication: Prosthetic cardiac valve thrombosis
     Dosage: UNK
     Route: 048
  2. WARFARIN [Suspect]
     Active Substance: WARFARIN
     Indication: Anticoagulant therapy

REACTIONS (1)
  - Drug ineffective [Unknown]
